FAERS Safety Report 4361037-4 (Version None)
Quarter: 2004Q2

REPORT INFORMATION
  Report Type: 
  Country: None (occurrence: None)
  Receive Date: 20040517
  Receipt Date: 20030918
  Transmission Date: 20050107
  Serious: No
  Sender: FDA-Public Use
  Company Number: 2003-106482-NL

PATIENT

DRUGS (5)
  1. MIRTAZAPINE [Suspect]
     Indication: DEPRESSION
     Dosage: 30 MG, ORAL
     Route: 048
     Dates: start: 20020503, end: 20021011
  2. LEVOTHYROXINE SODIUM [Concomitant]
  3. LORAZEPAM [Concomitant]
  4. OLANZAPINE [Concomitant]
  5. ZOPICLONE [Concomitant]

REACTIONS (1)
  - PEMPHIGUS [None]
